FAERS Safety Report 5126349-5 (Version None)
Quarter: 2006Q4

REPORT INFORMATION
  Report Type: 
  Country: None (occurrence: None)
  Receive Date: 20061010
  Receipt Date: 20060924
  Transmission Date: 20070319
  Serious: Yes (Other)
  Sender: FDA-Public Use
  Company Number: 2006115420

PATIENT
  Sex: Male
  Weight: 58.9676 kg

DRUGS (1)
  1. GEODON [Suspect]
     Dosage: 240 MG

REACTIONS (1)
  - MYOCARDIAL INFARCTION [None]
